FAERS Safety Report 9272565 (Version 1)
Quarter: 2013Q2

REPORT INFORMATION
  Report Type: Spontaneous
  Country: US (occurrence: US)
  Receive Date: 20130506
  Receipt Date: 20130506
  Transmission Date: 20140414
  Serious: Yes (Hospitalization, Other)
  Sender: FDA-Public Use
  Company Number: US-TEVA-402202USA

PATIENT
  Age: 17 Year
  Sex: Female

DRUGS (4)
  1. BACLOFEN [Suspect]
     Indication: CEREBRAL PALSY
     Route: 048
  2. BACLOFEN [Suspect]
     Indication: MUSCLE SPASTICITY
  3. BOTULINUM TOXIN [Concomitant]
     Indication: CEREBRAL PALSY
     Dosage: MONTHLY
     Route: 065
  4. BOTULINUM TOXIN [Concomitant]
     Indication: MUSCLE SPASTICITY

REACTIONS (3)
  - Withdrawal syndrome [Recovering/Resolving]
  - Psychotic disorder [Recovering/Resolving]
  - Circumstance or information capable of leading to medication error [Recovering/Resolving]
